FAERS Safety Report 25972509 (Version 4)
Quarter: 2025Q4

REPORT INFORMATION
  Report Type: Spontaneous
  Country: US (occurrence: US)
  Receive Date: 20251029
  Receipt Date: 20251124
  Transmission Date: 20260118
  Serious: No
  Sender: JOHNSON AND JOHNSON
  Company Number: US-JNJFOC-20251029856

PATIENT
  Age: 27 Year
  Sex: Female

DRUGS (2)
  1. TREMFYA [Suspect]
     Active Substance: GUSELKUMAB
     Indication: Crohn^s disease
     Dosage: STRENGTH: 200MG/2ML
     Route: 065
     Dates: start: 20251022, end: 20251022
  2. TREMFYA [Suspect]
     Active Substance: GUSELKUMAB
     Dosage: STRENGTH: 200MG/2ML
     Route: 065
     Dates: start: 20251022, end: 20251022

REACTIONS (6)
  - Product leakage [Unknown]
  - Device issue [Unknown]
  - Needle issue [Unknown]
  - Accidental exposure to product [Unknown]
  - Product dose omission issue [Unknown]
  - Injection site haemorrhage [Unknown]

NARRATIVE: CASE EVENT DATE: 20251022
